FAERS Safety Report 18521808 (Version 1)
Quarter: 2020Q4

REPORT INFORMATION
  Report Type: Spontaneous
  Country: HR (occurrence: HR)
  Receive Date: 20201119
  Receipt Date: 20201119
  Transmission Date: 20210114
  Serious: Yes (Other)
  Sender: FDA-Public Use
  Company Number: HR-ROCHE-2713653

PATIENT
  Age: 58 Year
  Sex: Female

DRUGS (2)
  1. ZELBORAF [Suspect]
     Active Substance: VEMURAFENIB
     Indication: PRODUCT USED FOR UNKNOWN INDICATION
     Dosage: MOST RECENT VERSION OF VEMURAFENIB WAS RECEIVED ON 21/OCT/2020.
     Route: 048
     Dates: start: 20201014
  2. COTELLIC [Suspect]
     Active Substance: COBIMETINIB
     Indication: PRODUCT USED FOR UNKNOWN INDICATION
     Dosage: MOST RECENT VERSION OF COBIMETINIB FUMARATE WAS RECEIVED ON 21/OCT/2020.
     Route: 048
     Dates: start: 20201014

REACTIONS (3)
  - Dermatitis bullous [Recovering/Resolving]
  - Asthenia [Recovering/Resolving]
  - Nausea [Recovering/Resolving]

NARRATIVE: CASE EVENT DATE: 20201021
